FAERS Safety Report 5503115-X (Version None)
Quarter: 2007Q4

REPORT INFORMATION
  Report Type: 
  Country: None (occurrence: None)
  Receive Date: 20071029
  Receipt Date: 20071029
  Transmission Date: 20080405
  Serious: Yes (Other)
  Sender: FDA-Public Use
  Company Number: None

PATIENT
  Age: 58 Year
  Sex: Female
  Weight: 95.2554 kg

DRUGS (1)
  1. BUDEPRION XL 300 MG TEVA ? [Suspect]
     Indication: DEPRESSION
     Dosage: 1 TAB  QD  PO
     Route: 048
     Dates: start: 20070501, end: 20070810

REACTIONS (2)
  - HEADACHE [None]
  - PHARMACEUTICAL PRODUCT COMPLAINT [None]
